FAERS Safety Report 9638981 (Version 1)
Quarter: 2013Q4

REPORT INFORMATION
  Report Type: Spontaneous
  Country: US (occurrence: US)
  Receive Date: 20131022
  Receipt Date: 20131022
  Transmission Date: 20140711
  Serious: Yes (Hospitalization)
  Sender: FDA-Public Use
  Company Number: US-BRISTOL-MYERS SQUIBB COMPANY-19537620

PATIENT
  Sex: Female

DRUGS (2)
  1. BYDUREON [Suspect]
     Indication: TYPE 2 DIABETES MELLITUS
     Route: 058
     Dates: start: 201303, end: 20130901
  2. METFORMIN [Concomitant]

REACTIONS (2)
  - Heart rate increased [Recovered/Resolved]
  - Weight decreased [Recovered/Resolved]
